FAERS Safety Report 18085602 (Version 1)
Quarter: 2020Q3

REPORT INFORMATION
  Report Type: Spontaneous
  Country: US (occurrence: US)
  Receive Date: 20200728
  Receipt Date: 20200728
  Transmission Date: 20201103
  Serious: Yes (Death)
  Sender: FDA-Public Use
  Company Number: None

PATIENT
  Age: 56 Year
  Sex: Male
  Weight: 113.3 kg

DRUGS (6)
  1. NOREPINEPHRINE. [Concomitant]
     Active Substance: NOREPINEPHRINE
     Dates: start: 20200712, end: 20200725
  2. MIDAZOLAM DRIP [Concomitant]
     Dates: start: 20200702, end: 20200725
  3. REMDESIVIR. [Suspect]
     Active Substance: REMDESIVIR
     Indication: COVID-19
     Route: 040
     Dates: start: 20200702, end: 20200711
  4. CISATRACURIUM. [Concomitant]
     Active Substance: CISATRACURIUM
     Dates: start: 20200711, end: 20200725
  5. NAFCILLIN [Concomitant]
     Active Substance: NAFCILLIN SODIUM
     Dates: start: 20200717, end: 20200723
  6. FENTANYL DRIP [Concomitant]
     Dates: start: 20200701, end: 20200725

REACTIONS (4)
  - Staphylococcal sepsis [None]
  - Liver disorder [None]
  - Condition aggravated [None]
  - Shock [None]

NARRATIVE: CASE EVENT DATE: 20200725
